FAERS Safety Report 9973001 (Version 1)
Quarter: 2014Q1

REPORT INFORMATION
  Report Type: Spontaneous
  Country: US (occurrence: US)
  Receive Date: 20140306
  Receipt Date: 20140306
  Transmission Date: 20141002
  Serious: Yes (Hospitalization)
  Sender: FDA-Public Use
  Company Number: US-PFIZER INC-2014058729

PATIENT
  Age: 73 Year
  Sex: Male

DRUGS (2)
  1. SULFASALAZINE [Suspect]
     Indication: COLITIS ULCERATIVE
     Dosage: 3 G, DAILY
  2. PREDNISONE [Concomitant]
     Indication: COLITIS ULCERATIVE
     Dosage: UNK

REACTIONS (4)
  - Ataxia [Recovered/Resolved]
  - Peripheral sensory neuropathy [Recovered/Resolved]
  - Drug-induced liver injury [Recovered/Resolved]
  - Neurotoxicity [Recovered/Resolved]
